FAERS Safety Report 4418224-6 (Version None)
Quarter: 2004Q3

REPORT INFORMATION
  Report Type: 
  Country: None (occurrence: None)
  Receive Date: 20040809
  Receipt Date: 20040109
  Transmission Date: 20050211
  Serious: No
  Sender: FDA-Public Use
  Company Number: US-GLAXOSMITHKLINE-A0492270A

PATIENT
  Age: 58 Year
  Sex: Female
  Weight: 59.1 kg

DRUGS (4)
  1. PAXIL [Suspect]
     Indication: DEPRESSION
     Dosage: 25MG PER DAY
     Route: 048
     Dates: end: 20040103
  2. SYNTHROID [Concomitant]
  3. CALCIUM [Concomitant]
  4. ASPIRIN [Concomitant]

REACTIONS (10)
  - AGITATION [None]
  - DRUG WITHDRAWAL SYNDROME [None]
  - FEELING ABNORMAL [None]
  - FORMICATION [None]
  - HEADACHE [None]
  - INFLUENZA LIKE ILLNESS [None]
  - NAUSEA [None]
  - PARAESTHESIA [None]
  - PHOTOPHOBIA [None]
  - VOMITING [None]
